FAERS Safety Report 11511964 (Version 2)
Quarter: 2016Q1

REPORT INFORMATION
  Report Type: Spontaneous
  Country: FR (occurrence: FR)
  Receive Date: 20150916
  Receipt Date: 20160104
  Transmission Date: 20160525
  Serious: Yes (Other)
  Sender: FDA-Public Use
  Company Number: FR-ROCHE-1634815

PATIENT
  Sex: Male
  Weight: 84 kg

DRUGS (5)
  1. ENALAPRIL MALEATE AND HYDROCHLOROTHIAZIDE [Concomitant]
     Active Substance: ENALAPRIL MALEATE\HYDROCHLOROTHIAZIDE
  2. KARDEGIC [Concomitant]
     Active Substance: ASPIRIN LYSINE
  3. LUCENTIS [Suspect]
     Active Substance: RANIBIZUMAB
     Indication: RETINAL VEIN OCCLUSION
     Dosage: DATE OF LAST DOSE PRIOR TO EVENT- 28/JUN/2012
     Route: 050
     Dates: start: 20120628
  4. AMLOR [Concomitant]
     Active Substance: AMLODIPINE BESYLATE
  5. LUCENTIS [Suspect]
     Active Substance: RANIBIZUMAB
     Indication: DIABETIC RETINAL OEDEMA

REACTIONS (1)
  - Prostatitis [Recovered/Resolved]
